FAERS Safety Report 20460012 (Version 1)
Quarter: 2022Q1

REPORT INFORMATION
  Report Type: Report from Study
  Country: US (occurrence: US)
  Receive Date: 20220211
  Receipt Date: 20220211
  Transmission Date: 20220423
  Serious: Yes (Hospitalization)
  Sender: FDA-Public Use
  Company Number: US-GILEAD-2022-0564833

PATIENT
  Age: 38 Year
  Sex: Male

DRUGS (10)
  1. AZTREONAM LYSINE [Suspect]
     Active Substance: AZTREONAM LYSINE
     Indication: Cystic fibrosis
     Dosage: 75 MG, TID CYCLE FOR 28 DAYS ON AND 28 DAYS OFF
     Route: 055
     Dates: start: 202105
  2. AZTREONAM LYSINE [Suspect]
     Active Substance: AZTREONAM LYSINE
     Indication: Cystic fibrosis lung
  3. TRIKAFTA [Concomitant]
     Active Substance: ELEXACAFTOR\IVACAFTOR\TEZACAFTOR
     Dosage: TRIKAFTA 100/50/75 MG AND 150 MG TAB
     Dates: start: 202106
  4. PULMOZYME [Concomitant]
     Active Substance: DORNASE ALFA
  5. DULERA [Concomitant]
     Active Substance: FORMOTEROL FUMARATE DIHYDRATE\MOMETASONE FUROATE
  6. ALBUTEROL SULFATE [Concomitant]
     Active Substance: ALBUTEROL SULFATE
  7. ALBUTEROL SULFATE [Concomitant]
     Active Substance: ALBUTEROL SULFATE
  8. TOBI [Concomitant]
     Active Substance: TOBRAMYCIN
  9. OMEPRAZOLE [Concomitant]
     Active Substance: OMEPRAZOLE
  10. URSODIOL [Concomitant]
     Active Substance: URSODIOL

REACTIONS (2)
  - Infection [Unknown]
  - Infection [Unknown]

NARRATIVE: CASE EVENT DATE: 20211224
